FAERS Safety Report 20510028 (Version 1)
Quarter: 2022Q1

REPORT INFORMATION
  Report Type: Spontaneous
  Country: US (occurrence: US)
  Receive Date: 20220224
  Receipt Date: 20220224
  Transmission Date: 20220424
  Serious: Yes (Life-Threatening, Other)
  Sender: FDA-Public Use
  Company Number: US-drreddys-LIT/USA/22/0147138

PATIENT
  Sex: Male

DRUGS (2)
  1. SIROLIMUS [Suspect]
     Active Substance: SIROLIMUS
     Indication: Arteriovenous malformation
     Dosage: TARGET TROUGH LEVEL 8-10 NG/ML AT 10 DAYS OF LIFE
     Route: 048
  2. SIROLIMUS [Suspect]
     Active Substance: SIROLIMUS
     Dosage: LOWERED
     Route: 048

REACTIONS (2)
  - Hypertriglyceridaemia [Recovering/Resolving]
  - Product use in unapproved indication [Unknown]
